FAERS Safety Report 8394908-2 (Version None)
Quarter: 2012Q2

REPORT INFORMATION
  Report Type: 
  Country: None (occurrence: None)
  Receive Date: 20120530
  Receipt Date: 20110516
  Transmission Date: 20120825
  Serious: No
  Sender: FDA-Public Use
  Company Number: US-GLAXOSMITHKLINE-A0929043A

PATIENT
  Age: 51 Year
  Sex: Male

DRUGS (2)
  1. FLOLAN [Suspect]
     Indication: PULMONARY HYPERTENSION
     Dosage: 54NGKM SEE DOSAGE TEXT
     Route: 042
     Dates: start: 20050427
  2. FLOLAN [Suspect]
     Indication: PULMONARY HYPERTENSION
     Route: 042
     Dates: start: 20050427

REACTIONS (4)
  - RASH ERYTHEMATOUS [None]
  - RASH [None]
  - SKIN EXFOLIATION [None]
  - PRURITUS [None]
